FAERS Safety Report 4726934-6 (Version None)
Quarter: 2005Q3

REPORT INFORMATION
  Report Type: 
  Country: None (occurrence: None)
  Receive Date: 20050725
  Receipt Date: 20050725
  Transmission Date: 20060218
  Serious: Yes (Other)
  Sender: FDA-Public Use
  Company Number: None

PATIENT
  Age: 12 Year
  Sex: Female
  Weight: 71.2147 kg

DRUGS (2)
  1. ADVAIR DISKUS 250/50 [Suspect]
     Indication: ASTHMA
     Dosage: 1 PUFF      2TIMES PER DAY   ORAL
     Route: 048
     Dates: start: 20050105, end: 20050722
  2. ALBUTEROL [Concomitant]

REACTIONS (4)
  - CANDIDIASIS [None]
  - MYALGIA [None]
  - STOMACH DISCOMFORT [None]
  - WEIGHT INCREASED [None]
